FAERS Safety Report 4479717-9 (Version None)
Quarter: 2004Q4

REPORT INFORMATION
  Report Type: 
  Country: None (occurrence: None)
  Receive Date: 20041020
  Receipt Date: 20041008
  Transmission Date: 20050328
  Serious: Yes (Hospitalization)
  Sender: FDA-Public Use
  Company Number: US-ROCHE-382977

PATIENT
  Age: 58 Year
  Sex: Male

DRUGS (7)
  1. XELODA [Suspect]
     Dosage: TWICE NORMAL DOSE TAKEN FOR ELEVEN DAYS.
     Route: 048
     Dates: start: 20040815
  2. XELODA [Suspect]
     Route: 048
     Dates: start: 20040601, end: 20040815
  3. XELODA [Suspect]
     Route: 048
  4. TAXOTERE [Suspect]
     Route: 065
     Dates: start: 20040601, end: 20040715
  5. AVASTIN [Concomitant]
     Route: 065
     Dates: start: 20040715
  6. GEMZAR [Concomitant]
     Route: 065
     Dates: start: 20040601
  7. VICODIN [Concomitant]
     Indication: PAIN
     Route: 065
     Dates: start: 20030715

REACTIONS (10)
  - BLOOD GLUCOSE INCREASED [None]
  - CIRCULATORY COLLAPSE [None]
  - DEHYDRATION [None]
  - DYSPNOEA [None]
  - INFLUENZA [None]
  - OVERDOSE [None]
  - PNEUMONIA [None]
  - PYREXIA [None]
  - THROMBOSIS [None]
  - WEIGHT DECREASED [None]
